FAERS Safety Report 5102791-3 (Version None)
Quarter: 2006Q3

REPORT INFORMATION
  Report Type: 
  Country: None (occurrence: None)
  Receive Date: 20060907
  Receipt Date: 20060829
  Transmission Date: 20061208
  Serious: Yes (Death)
  Sender: FDA-Public Use
  Company Number: 2006P1000425

PATIENT
  Age: 88 Year
  Sex: Male

DRUGS (8)
  1. RETEPLASE (RETEPLASE) [Suspect]
     Indication: MYOCARDIAL INFARCTION
     Dates: start: 20060519, end: 20060519
  2. HEPARIN [Concomitant]
  3. CLOPIDOGREL BISULATE [Concomitant]
  4. PENICILLIN V/00001802/ [Concomitant]
  5. ASPIRIN [Concomitant]
  6. FOLIC ACID [Concomitant]
  7. BEHEPAN [Concomitant]
  8. SINEMET [Concomitant]

REACTIONS (4)
  - BLOOD POTASSIUM INCREASED [None]
  - C-REACTIVE PROTEIN INCREASED [None]
  - CARDIOVASCULAR DISORDER [None]
  - RENAL FAILURE [None]
